FAERS Safety Report 8709161 (Version 2)
Quarter: 2013Q4

REPORT INFORMATION
  Report Type: Spontaneous
  Country: US (occurrence: US)
  Receive Date: 20120806
  Receipt Date: 20131031
  Transmission Date: 20140711
  Serious: No
  Sender: FDA-Public Use
  Company Number: US-009507513-2012SP009974

PATIENT
  Age: 53 Year
  Sex: Male
  Weight: 90.72 kg

DRUGS (9)
  1. AFRIN NO DRIP SEVERE CONGESTION [Suspect]
     Indication: NASOPHARYNGITIS
     Dosage: UNK UNK, UNKNOWN
     Route: 045
     Dates: start: 201012
  2. AFRIN NO DRIP SEVERE CONGESTION [Suspect]
     Indication: UPPER RESPIRATORY TRACT CONGESTION
     Dosage: UNK UNK, UNKNOWN
     Route: 045
     Dates: start: 201102
  3. AFRIN NO DRIP SEVERE CONGESTION [Suspect]
     Dosage: UNK UNK, UNKNOWN
     Route: 045
     Dates: start: 201112
  4. METFORMIN HYDROCHLORIDE [Concomitant]
     Indication: DIABETES MELLITUS
     Dosage: 500 MG, QD
  5. SIMVASTATIN [Concomitant]
     Indication: BLOOD CHOLESTEROL
     Dosage: 40 MG, UNKNOWN
  6. PROTONIX [Concomitant]
     Indication: DYSPEPSIA
     Dosage: 40 MG, UNKNOWN
  7. ASPIRIN [Concomitant]
     Indication: UNEVALUABLE EVENT
     Dosage: 81 MG, UNKNOWN
  8. METRONIDAZOLE [Concomitant]
     Indication: DIVERTICULITIS
     Dosage: 500 MG, UNKNOWN
  9. CIPROFLOXACIN [Concomitant]
     Indication: DIVERTICULITIS
     Dosage: 500 MG, UNKNOWN

REACTIONS (2)
  - Abdominal pain upper [Unknown]
  - Condition aggravated [Unknown]
